FAERS Safety Report 10005932 (Version 2)
Quarter: 2014Q1

REPORT INFORMATION
  Report Type: Spontaneous
  Country: US (occurrence: US)
  Receive Date: 20140313
  Receipt Date: 20140313
  Transmission Date: 20141002
  Serious: No
  Sender: FDA-Public Use
  Company Number: US-DRREDDYS-USA/USA/13/0027697

PATIENT
  Age: 52 Year
  Sex: Female
  Weight: 73.55 kg

DRUGS (4)
  1. DIVALPROEX SODIUM DELAYED RELEASE CAPSULES 125 MG (SPRINKLES) (VALPROATE SEMISODIUM) [Suspect]
     Indication: POST-TRAUMATIC STRESS DISORDER
     Dosage: 7 CAPSULES DAILY
     Route: 048
  2. DIVALPROEX SODIUM DELAYED RELEASE CAPSULES 125 MG (SPRINKLES ) [Suspect]
     Indication: AFFECTIVE DISORDER
  3. CLONAZEPAM [Concomitant]
     Indication: SLEEP DISORDER
     Route: 065
  4. CLARITIN [Concomitant]
     Indication: HYPERSENSITIVITY
     Route: 065

REACTIONS (5)
  - Weight increased [Not Recovered/Not Resolved]
  - Dry mouth [Recovered/Resolved]
  - Tongue dry [Recovered/Resolved]
  - Thirst [Unknown]
  - Extra dose administered [Unknown]
